FAERS Safety Report 8431441-3 (Version None)
Quarter: 2012Q2

REPORT INFORMATION
  Report Type: 
  Country: None (occurrence: None)
  Receive Date: 20120613
  Receipt Date: 20120604
  Transmission Date: 20120825
  Serious: Yes (Hospitalization)
  Sender: FDA-Public Use
  Company Number: US-BAYER-201033475NA

PATIENT
  Age: 26 Year
  Sex: Female
  Weight: 61.678 kg

DRUGS (8)
  1. YASMIN [Suspect]
     Indication: DYSFUNCTIONAL UTERINE BLEEDING
     Dosage: UNK
     Dates: end: 20060101
  2. MULTI-VITAMINS [Concomitant]
     Dosage: UNK
     Route: 048
     Dates: start: 20061207
  3. LORTAB [Concomitant]
  4. ACETAMINOPHEN [Concomitant]
  5. ROZEREM [Concomitant]
     Indication: INSOMNIA
     Dosage: 8 MG, HS
     Route: 048
     Dates: start: 20060920
  6. PONSTEL [Concomitant]
     Indication: HAEMORRHAGE
     Dosage: 250 MG, PRN
     Route: 048
     Dates: start: 20060920
  7. AMBIEN [Concomitant]
     Indication: INSOMNIA
     Dosage: 10 MG, HS
     Route: 048
     Dates: start: 20060920
  8. YAZ [Suspect]
     Indication: CONTRACEPTION
     Dosage: UNK UNK, UNK
     Route: 065
     Dates: start: 20050101, end: 20060101

REACTIONS (5)
  - STRESS [None]
  - DEPRESSION [None]
  - PANIC ATTACK [None]
  - PULMONARY EMBOLISM [None]
  - ANXIETY [None]
